FAERS Safety Report 4654082-2 (Version None)
Quarter: 2005Q2

REPORT INFORMATION
  Report Type: 
  Country: None (occurrence: None)
  Receive Date: 20050504
  Receipt Date: 20050426
  Transmission Date: 20051028
  Serious: Yes (Hospitalization)
  Sender: FDA-Public Use
  Company Number: 2005-04-0663

PATIENT
  Age: 56 Year
  Sex: Female
  Weight: 57 kg

DRUGS (4)
  1. VIRAFERONPEG [Suspect]
     Indication: HEPATITIS C
     Dosage: 80 MCG QWK SUBCUTANEOUS
     Route: 058
     Dates: start: 20050101, end: 20050301
  2. REETOL (RIBAVIRIN) CAPSULES [Suspect]
     Indication: HEPATITIS C
     Dosage: 800 MG QD ORAL
     Route: 048
     Dates: start: 20050101, end: 20050301
  3. FOLIC ACID [Concomitant]
  4. INSULIN INJECTABLE [Concomitant]

REACTIONS (5)
  - ABDOMINAL PAIN UPPER [None]
  - APHASIA [None]
  - COMMUNICATION DISORDER [None]
  - DISORIENTATION [None]
  - SOMNOLENCE [None]
